FAERS Safety Report 6355720-9 (Version None)
Quarter: 2009Q3

REPORT INFORMATION
  Report Type: 
  Country: None (occurrence: None)
  Receive Date: 20090910
  Receipt Date: 20090831
  Transmission Date: 20100115
  Serious: Yes (Hospitalization)
  Sender: FDA-Public Use
  Company Number: GXKR2009NL09860

PATIENT
  Age: 76 Year
  Sex: Female

DRUGS (6)
  1. AMLODIPINE [Suspect]
     Indication: ANGINA PECTORIS
     Dosage: 1 DF, QD, ORAL
     Route: 048
     Dates: start: 20090707, end: 20090721
  2. METOPROLOL SUCCINATE [Concomitant]
  3. NITROLINGUAL-SPRAY N (GLYCERYL TRINITRATE) [Concomitant]
  4. ALPRAZOLAM [Concomitant]
  5. PRAVASTATIN [Concomitant]
  6. DIOVAN A (AMLODIPINE, VALSARTAN) [Concomitant]

REACTIONS (1)
  - MENTAL DISORDER [None]
